FAERS Safety Report 5002276-9 (Version None)
Quarter: 2006Q2

REPORT INFORMATION
  Report Type: 
  Country: None (occurrence: None)
  Receive Date: 20060512
  Receipt Date: 20060501
  Transmission Date: 20061013
  Serious: Yes (Other)
  Sender: FDA-Public Use
  Company Number: GXKR2006IT02452

PATIENT
  Age: 71 Year
  Sex: Male

DRUGS (7)
  1. OMEPRAZOLE (NGX)(OMEPRAZOLE) POWDER FOR SOL FOR INF, 40/10MG/ML [Suspect]
     Indication: ABDOMINAL PAIN UPPER
     Dosage: 40 MG/10 ML, INFUSION  ; INFUSION
  2. NACL (SODIUM CHLORIDE) [Concomitant]
  3. TRAZODONE HCL [Concomitant]
  4. RAMIPRIL [Concomitant]
  5. HYDROCHLOROTHIAZIDE [Concomitant]
  6. ACETYLSALICYLIC ACID SRT [Concomitant]
  7. NADROPARIN [Concomitant]

REACTIONS (6)
  - ALANINE AMINOTRANSFERASE INCREASED [None]
  - ASPARTATE AMINOTRANSFERASE INCREASED [None]
  - DIABETES MELLITUS [None]
  - GASTRIC DISORDER [None]
  - GASTROOESOPHAGEAL REFLUX DISEASE [None]
  - MYOPATHY [None]
